FAERS Safety Report 8211139-7 (Version None)
Quarter: 2012Q1

REPORT INFORMATION
  Report Type: 
  Country: None (occurrence: None)
  Receive Date: 20120315
  Receipt Date: 20120308
  Transmission Date: 20120608
  Serious: Yes (Other)
  Sender: FDA-Public Use
  Company Number: ZA-B.I. PHARMACEUTICALS,INC./RIDGEFIELD-2012-AP-00217ZA

PATIENT
  Sex: Female

DRUGS (5)
  1. CEFUROXIME [Concomitant]
  2. PRADAXA [Suspect]
     Indication: THROMBOSIS PROPHYLAXIS
     Dosage: 220 MG
     Route: 048
     Dates: start: 20110101, end: 20110101
  3. PIROXICAM [Suspect]
  4. LEVOFLOXACIN [Concomitant]
  5. SYNALEVE [Concomitant]

REACTIONS (1)
  - STEVENS-JOHNSON SYNDROME [None]
